FAERS Safety Report 14007149 (Version 1)
Quarter: 2017Q3

REPORT INFORMATION
  Report Type: Spontaneous
  Country: US (occurrence: US)
  Receive Date: 20170923
  Receipt Date: 20170923
  Transmission Date: 20171128
  Serious: Yes (Hospitalization)
  Sender: FDA-Public Use
  Company Number: None

PATIENT
  Age: 32 Year
  Sex: Female
  Weight: 67.95 kg

DRUGS (2)
  1. KEPPRA [Concomitant]
     Active Substance: LEVETIRACETAM
  2. PREDNISONE. [Suspect]
     Active Substance: PREDNISONE
     Indication: ARTHROPOD BITE
     Dosage: ?          OTHER FREQUENCY:DOSE PACK;?
     Route: 048
     Dates: start: 20170917, end: 20170920

REACTIONS (1)
  - Seizure [None]

NARRATIVE: CASE EVENT DATE: 20170921
